FAERS Safety Report 9121023 (Version 2)
Quarter: 2013Q1

REPORT INFORMATION
  Report Type: Spontaneous
  Country: FR (occurrence: FR)
  Receive Date: 20130226
  Receipt Date: 20130301
  Transmission Date: 20140127
  Serious: Yes (Other)
  Sender: FDA-Public Use
  Company Number: FR-TEVA-387338ISR

PATIENT
  Sex: Female

DRUGS (4)
  1. PANTOPRAZOLE [Suspect]
     Indication: DYSPEPSIA
     Dosage: 20 MICROGRAM DAILY;
     Route: 048
     Dates: start: 2012, end: 201301
  2. PANTOPRAZOLE [Suspect]
     Dosage: 40 MILLIGRAM DAILY;
     Route: 048
     Dates: start: 201301, end: 201302
  3. SIMVASTATIN [Concomitant]
     Route: 048
  4. PIRACETAM [Concomitant]
     Route: 048

REACTIONS (7)
  - Dementia Alzheimer^s type [Not Recovered/Not Resolved]
  - Disorientation [Not Recovered/Not Resolved]
  - Staring [Not Recovered/Not Resolved]
  - Mental disorder [Not Recovered/Not Resolved]
  - Eating disorder [Not Recovered/Not Resolved]
  - Gastrooesophageal reflux disease [None]
  - Treatment noncompliance [None]
